FAERS Safety Report 9306796 (Version 2)
Quarter: 2013Q1

REPORT INFORMATION
  Report Type: Spontaneous
  Country: VE (occurrence: None)
  Receive Date: 20130322
  Receipt Date: 20130325
  Transmission Date: 20140127
  Serious: Yes (Other)
  Sender: FDA-Public Use
  Company Number: VAL_02221_2013

PATIENT
  Age: 54 Year
  Sex: Female

DRUGS (6)
  1. LOPRESOR [Suspect]
     Indication: MIGRAINE
     Route: 048
     Dates: start: 2002, end: 2011
  2. LOPRESOR [Suspect]
     Indication: OFF LABEL USE
     Route: 048
     Dates: start: 2002, end: 2011
  3. IBUPROFEN [Concomitant]
  4. BURGESIC [Concomitant]
  5. CATAFLAM [Concomitant]
  6. MIGREN - ACETAMINOPHEN/DIHYDROERGOTAMINE/CAFFEINE [Concomitant]

REACTIONS (3)
  - Migraine [None]
  - Ear disorder [None]
  - Osteoarthritis [None]
